FAERS Safety Report 9068881 (Version 1)
Quarter: 2013Q1

REPORT INFORMATION
  Report Type: Spontaneous
  Country: DE (occurrence: DE)
  Receive Date: 20130215
  Receipt Date: 20130215
  Transmission Date: 20140127
  Serious: Yes (Death)
  Sender: FDA-Public Use
  Company Number: DE-ELI_LILLY_AND_COMPANY-DE201302001809

PATIENT
  Sex: Male

DRUGS (4)
  1. FORSTEO [Suspect]
     Indication: OSTEOPOROSIS
     Dosage: UNK UNK, QD
     Route: 058
     Dates: start: 20111216, end: 20130109
  2. CORTISONE [Concomitant]
     Dosage: UNK, UNKNOWN
  3. CALCIUM [Concomitant]
     Dosage: UNK, UNKNOWN
  4. MARCUMAR [Concomitant]
     Dosage: UNK, UNKNOWN

REACTIONS (3)
  - Bladder cancer [Fatal]
  - Renal failure [Fatal]
  - Feeling abnormal [Unknown]
